FAERS Safety Report 25994360 (Version 4)
Quarter: 2025Q4

REPORT INFORMATION
  Report Type: Report from Study
  Country: US (occurrence: US)
  Receive Date: 20251104
  Receipt Date: 20251222
  Transmission Date: 20260117
  Serious: Yes (Other)
  Sender: INSMED
  Company Number: US-INSMED, INC.-2025-04167-US

PATIENT
  Sex: Female

DRUGS (4)
  1. BRINSUPRI [Suspect]
     Active Substance: BRENSOCATIB
     Indication: Bronchiectasis
     Dosage: 10 MILLIGRAM, QD
     Route: 048
     Dates: start: 20250923
  2. AZITHROMYCIN ANHYDROUS [Concomitant]
     Active Substance: AZITHROMYCIN ANHYDROUS
     Indication: Product used for unknown indication
     Dosage: UNK, UNK (BY MOUTH FOR 5 DAYS)
     Route: 048
     Dates: start: 20251104, end: 20251108
  3. CIPROFLOXACIN [Concomitant]
     Active Substance: CIPROFLOXACIN
     Indication: Product used for unknown indication
     Dosage: UNK UNK, BID (BY MOUTH FOR 7 DAYS TOOK LAST DOSE OF CIPROFLOXACIN TONIGHT)
     Route: 048
     Dates: start: 20251111
  4. AMLODIPINE [Concomitant]
     Active Substance: AMLODIPINE BESYLATE
     Indication: Hypertension
     Dosage: UNK, UNK
     Route: 065

REACTIONS (5)
  - Cardiac flutter [Unknown]
  - Blood pressure increased [Unknown]
  - Palpitations [Recovered/Resolved]
  - Insomnia [Unknown]
  - Pyrexia [Not Recovered/Not Resolved]

NARRATIVE: CASE EVENT DATE: 20250101
